FAERS Safety Report 5730927-X (Version None)
Quarter: 2008Q2

REPORT INFORMATION
  Report Type: 
  Country: None (occurrence: None)
  Receive Date: 20080502
  Receipt Date: 20080416
  Transmission Date: 20081010
  Serious: Yes (Hospitalization)
  Sender: FDA-Public Use
  Company Number: 2008BI004323

PATIENT
  Age: 38 Year
  Sex: Male
  Weight: 78.064 kg

DRUGS (1)
  1. TYSABRI [Suspect]
     Indication: MULTIPLE SCLEROSIS
     Dosage: 300 MG; QM; IV
     Route: 042
     Dates: start: 20061208, end: 20080101

REACTIONS (2)
  - ANAEMIA VITAMIN B12 DEFICIENCY [None]
  - GASTRITIS [None]
